FAERS Safety Report 10680606 (Version 4)
Quarter: 2015Q3

REPORT INFORMATION
  Report Type: Spontaneous
  Country: US (occurrence: US)
  Receive Date: 20141229
  Receipt Date: 20150916
  Transmission Date: 20151125
  Serious: Yes (Hospitalization, Other)
  Sender: FDA-Public Use
  Company Number: US-SA-2014SA092733

PATIENT
  Age: 55 Year
  Sex: Female

DRUGS (52)
  1. BABY ASPIRIN [Concomitant]
     Active Substance: ASPIRIN
  2. NITROGLYCERINE [Concomitant]
     Active Substance: NITROGLYCERIN
  3. SIMVASTATIN. [Concomitant]
     Active Substance: SIMVASTATIN
  4. PROVENTIL [Concomitant]
     Active Substance: ALBUTEROL
  5. LISINOPRIL. [Concomitant]
     Active Substance: LISINOPRIL
  6. TYLENOL [Concomitant]
     Active Substance: ACETAMINOPHEN
  7. NEURONTIN [Concomitant]
     Active Substance: GABAPENTIN
     Route: 048
  8. NYSTATIN. [Concomitant]
     Active Substance: NYSTATIN
  9. MORPHINE [Concomitant]
     Active Substance: MORPHINE
  10. PLAVIX [Suspect]
     Active Substance: CLOPIDOGREL BISULFATE
     Indication: ARTERIAL OCCLUSIVE DISEASE
     Route: 048
     Dates: start: 200507, end: 20101111
  11. THEOPHYLLINE [Concomitant]
     Active Substance: THEOPHYLLINE ANHYDROUS
  12. AZITHROMYCIN [Concomitant]
     Active Substance: AZITHROMYCIN ANHYDROUS
  13. HYDROCORTISONE. [Concomitant]
     Active Substance: HYDROCORTISONE
     Route: 061
  14. XANAX [Concomitant]
     Active Substance: ALPRAZOLAM
     Route: 048
  15. ULTRAM [Concomitant]
     Active Substance: TRAMADOL HYDROCHLORIDE
  16. GLIMEPIRIDE. [Concomitant]
     Active Substance: GLIMEPIRIDE
  17. AMLODIPINE [Concomitant]
     Active Substance: AMLODIPINE BESYLATE
  18. ADVAIR HFA [Concomitant]
     Active Substance: FLUTICASONE PROPIONATE\SALMETEROL XINAFOATE
     Route: 055
  19. ZOLOFT [Concomitant]
     Active Substance: SERTRALINE HYDROCHLORIDE
  20. DETROL [Concomitant]
     Active Substance: TOLTERODINE TARTRATE
     Route: 048
  21. TOPROL XL [Concomitant]
     Active Substance: METOPROLOL SUCCINATE
  22. SULAR [Concomitant]
     Active Substance: NISOLDIPINE
  23. FERROUS SULFATE [Concomitant]
     Active Substance: FERROUS SULFATE\FERROUS SULFATE, DRIED
     Dosage: 325 MG
     Route: 048
  24. POTASSIUM CHLORIDE. [Concomitant]
     Active Substance: POTASSIUM CHLORIDE
     Route: 048
  25. SPIRIVA [Concomitant]
     Active Substance: TIOTROPIUM BROMIDE MONOHYDRATE
     Route: 048
  26. SERTRALINE [Concomitant]
     Active Substance: SERTRALINE HYDROCHLORIDE
  27. HYDROCODONE [Concomitant]
     Active Substance: HYDROCODONE
  28. METFORMIN [Concomitant]
     Active Substance: METFORMIN HYDROCHLORIDE
  29. OMEPRAZOLE. [Concomitant]
     Active Substance: OMEPRAZOLE
  30. PREVACID [Concomitant]
     Active Substance: LANSOPRAZOLE
  31. ADVIL [Concomitant]
     Active Substance: IBUPROFEN
     Route: 048
  32. SULFAMETHOXAZOLE [Concomitant]
     Active Substance: SULFAMETHOXAZOLE
  33. CIPROFLOXACIN. [Concomitant]
     Active Substance: CIPROFLOXACIN
  34. CEPHALEXIN. [Concomitant]
     Active Substance: CEPHALEXIN
  35. OXYCODONE [Concomitant]
     Active Substance: OXYCODONE
  36. SKELAXIN [Concomitant]
     Active Substance: METAXALONE
     Route: 048
  37. GABAPENTIN. [Concomitant]
     Active Substance: GABAPENTIN
  38. ZOCOR [Concomitant]
     Active Substance: SIMVASTATIN
     Route: 048
  39. DIOVAN [Concomitant]
     Active Substance: VALSARTAN
  40. ALPRAZOLAM. [Concomitant]
     Active Substance: ALPRAZOLAM
  41. OXYBUTYNIN [Concomitant]
     Active Substance: OXYBUTYNIN
  42. ALEVE [Concomitant]
     Active Substance: NAPROXEN SODIUM
  43. AVELOX [Concomitant]
     Active Substance: MOXIFLOXACIN HYDROCHLORIDE
  44. DEXILANT [Concomitant]
     Active Substance: DEXLANSOPRAZOLE
     Route: 048
  45. CEFUROXIME. [Concomitant]
     Active Substance: CEFUROXIME
  46. BACTROBAN [Concomitant]
     Active Substance: MUPIROCIN\MUPIROCIN CALCIUM
  47. CARAFATE [Concomitant]
     Active Substance: SUCRALFATE
  48. DIPHENHYDRAMINE. [Concomitant]
     Active Substance: DIPHENHYDRAMINE
     Dosage: SUSPENSION
  49. PLAVIX [Suspect]
     Active Substance: CLOPIDOGREL BISULFATE
     Indication: STENT PLACEMENT
     Route: 048
     Dates: start: 200507, end: 20101111
  50. METHYLPREDNISOLONE. [Concomitant]
     Active Substance: METHYLPREDNISOLONE
  51. LEVAQUIN [Concomitant]
     Active Substance: LEVOFLOXACIN
  52. ALBUTEROL SULFATE. [Concomitant]
     Active Substance: ALBUTEROL SULFATE
     Dosage: 0.083 TID PRN

REACTIONS (13)
  - Menorrhagia [Unknown]
  - Gastrointestinal haemorrhage [Unknown]
  - Occult blood positive [Unknown]
  - Weight decreased [Unknown]
  - Pulmonary pain [Unknown]
  - Rectal haemorrhage [Unknown]
  - Lung infection [Unknown]
  - Hyperventilation [Unknown]
  - Dyspnoea [Unknown]
  - Cough [Unknown]
  - Diverticulitis [Unknown]
  - Anaemia [Unknown]
  - Abdominal pain [Unknown]

NARRATIVE: CASE EVENT DATE: 20101111
